FAERS Safety Report 4486236-2 (Version None)
Quarter: 2004Q3

REPORT INFORMATION
  Report Type: 
  Country: None (occurrence: None)
  Receive Date: 20040921
  Receipt Date: 20040419
  Transmission Date: 20050211
  Serious: Yes (Hospitalization)
  Sender: FDA-Public Use
  Company Number: 163-20785-04040450

PATIENT
  Age: 73 Year
  Sex: Male
  Weight: 75 kg

DRUGS (2)
  1. THALOMID [Suspect]
     Indication: METASTASES TO CENTRAL NERVOUS SYSTEM
     Dosage: ORAL
     Route: 048
     Dates: start: 20040318, end: 20040412
  2. RADIATION THERAPY (UNKNOWN) [Suspect]
     Indication: METASTASES TO CENTRAL NERVOUS SYSTEM
     Dates: start: 20040318

REACTIONS (3)
  - RASH GENERALISED [None]
  - STEVENS-JOHNSON SYNDROME [None]
  - STOMATITIS [None]
